FAERS Safety Report 23015142 (Version 1)
Quarter: 2023Q4

REPORT INFORMATION
  Report Type: Spontaneous
  Country: US (occurrence: None)
  Receive Date: 20231002
  Receipt Date: 20231002
  Transmission Date: 20240110
  Serious: Yes (Hospitalization)
  Sender: FDA-Public Use
  Company Number: None

PATIENT
  Sex: Male

DRUGS (14)
  1. ARANESP [Suspect]
     Active Substance: DARBEPOETIN ALFA
     Indication: Liver transplant
     Dosage: 60 MCG/0.3ML INJECTION??INJECT ONE PREFILLED SYRINGE (60 MCG) UNDER THE SKIN (SUBCUTANEOUS INJECTION
     Route: 058
     Dates: start: 20220909
  2. ASPIRIN CHW [Concomitant]
  3. CHLORTHALIDONE [Concomitant]
     Active Substance: CHLORTHALIDONE
  4. FUROSEMIDE [Concomitant]
     Active Substance: FUROSEMIDE
  5. LOKELMA PAK [Concomitant]
  6. MAGNESIUM [Concomitant]
     Active Substance: MAGNESIUM
  7. VITAMINS [Concomitant]
     Active Substance: VITAMINS
  8. MYCOPHENOLIC ACID [Concomitant]
     Active Substance: MYCOPHENOLIC ACID
  9. NIFEDIPINE [Concomitant]
     Active Substance: NIFEDIPINE
  10. SODIUM BICAR [Concomitant]
  11. TACROLIMUS [Concomitant]
     Active Substance: TACROLIMUS
  12. THIAMINE HYDROCHLORIDE [Concomitant]
     Active Substance: THIAMINE HYDROCHLORIDE
  13. VITAMIN D [Concomitant]
     Active Substance: VITAMIN D NOS
  14. ZARXIO [Concomitant]
     Active Substance: FILGRASTIM-SNDZ

REACTIONS (2)
  - Pneumonia [None]
  - Rhinovirus infection [None]
